FAERS Safety Report 24571790 (Version 2)
Quarter: 2025Q3

REPORT INFORMATION
  Report Type: Spontaneous
  Country: EU (occurrence: EU)
  Receive Date: 20241101
  Receipt Date: 20250925
  Transmission Date: 20251021
  Serious: Yes (Hospitalization, Other)
  Sender: CHEPLAPHARM
  Company Number: None

PATIENT
  Age: 34 Year
  Sex: Female
  Weight: 125 kg

DRUGS (5)
  1. OLANZAPINE [Suspect]
     Active Substance: OLANZAPINE
     Indication: Depression
     Dosage: 0-0-1 ?DAILY DOSE: 10 MILLIGRAM
     Route: 048
     Dates: start: 202404, end: 2024
  2. ZOPICLONE [Concomitant]
     Active Substance: ZOPICLONE
     Dosage: 0-0-1 ?DAILY DOSE: 7.5 MILLIGRAM
  3. VALIUM [Concomitant]
     Active Substance: DIAZEPAM
     Dosage: 0-0-2?DAILY DOSE: 2 DOSAGE FORM
  4. CLOMIPRAMINE HYDROCHLORIDE [Concomitant]
     Active Substance: CLOMIPRAMINE HYDROCHLORIDE
     Dosage: 0-0-1?DAILY DOSE: 75 MILLIGRAM
  5. CRATAEGUS EXTRACT [Concomitant]
     Active Substance: HAWTHORN LEAF WITH FLOWER

REACTIONS (5)
  - Diabetes mellitus [Recovered/Resolved with Sequelae]
  - Weight increased [Recovered/Resolved with Sequelae]
  - Diabetes insipidus [Unknown]
  - Hepatomegaly [Recovering/Resolving]
  - Pancreatic disorder [Recovering/Resolving]

NARRATIVE: CASE EVENT DATE: 20240401
